FAERS Safety Report 7868617 (Version 2)
Quarter: 2013Q1

REPORT INFORMATION
  Report Type: Spontaneous
  Country: US (occurrence: US)
  Receive Date: 20110323
  Receipt Date: 20130208
  Transmission Date: 20140127
  Serious: Yes (Hospitalization, Other)
  Sender: FDA-Public Use
  Company Number: US-RB-021400-11

PATIENT
  Age: 31 None
  Sex: Female

DRUGS (3)
  1. BUPRENORPHINE HYDROCHLORIDE/NALOXONE HYDROCHLORIDE [Suspect]
     Indication: DRUG DEPENDENCE
     Dosage: 4-8 MG DAILY
     Route: 060
     Dates: start: 201003, end: 20110121
  2. BUPRENORPHINE HYDROCHLORIDE [Suspect]
     Indication: DRUG DEPENDENCE
     Dosage: 4-8 MG DAILY
     Route: 060
     Dates: start: 20110122, end: 20110311
  3. MORPHINE [Suspect]
     Indication: PAIN
     Dosage: UNKNOWN DOSING DETAILS
     Route: 065
     Dates: start: 20110311

REACTIONS (4)
  - Exposure during pregnancy [Recovered/Resolved]
  - Ovarian cyst [Recovered/Resolved]
  - Premature delivery [Recovered/Resolved]
  - Pain [Recovered/Resolved]
